FAERS Safety Report 13736442 (Version 1)
Quarter: 2017Q3

REPORT INFORMATION
  Report Type: Spontaneous
  Country: CH (occurrence: CH)
  Receive Date: 20170710
  Receipt Date: 20170710
  Transmission Date: 20171127
  Serious: Yes (Hospitalization)
  Sender: FDA-Public Use
  Company Number: CH-BAYER-2017-128306

PATIENT
  Age: 83 Year
  Sex: Male
  Weight: 92 kg

DRUGS (14)
  1. STILNOX [Concomitant]
     Active Substance: ZOLPIDEM TARTRATE
  2. CRESTOR [Concomitant]
     Active Substance: ROSUVASTATIN CALCIUM
  3. TOREM [Concomitant]
     Active Substance: TORSEMIDE
  4. JANUVIA [Concomitant]
     Active Substance: SITAGLIPTIN PHOSPHATE
  5. COVERAM [Concomitant]
     Active Substance: AMLODIPINE\PERINDOPRIL
  6. ASPIRIN CARDIO 100 MG [Suspect]
     Active Substance: ASPIRIN
     Indication: PERCUTANEOUS CORONARY INTERVENTION
     Dosage: 100 MG, QD
     Route: 048
     Dates: start: 20150731, end: 20170616
  7. PLAVIX [Interacting]
     Active Substance: CLOPIDOGREL BISULFATE
     Indication: PERCUTANEOUS CORONARY INTERVENTION
     Dosage: 75 MG, QD
     Route: 048
     Dates: start: 20150731, end: 20170616
  8. DUODART [Concomitant]
     Active Substance: DUTASTERIDE\TAMSULOSIN
  9. METO [Concomitant]
  10. LEVEMIR [Concomitant]
     Active Substance: INSULIN DETEMIR
  11. MAGNESIUM DIASPORAL [Concomitant]
     Active Substance: MAGNESIUM
  12. MARCOUMAR [Interacting]
     Active Substance: PHENPROCOUMON
     Indication: ATRIAL FLUTTER
     Dosage: 1 DF, UNK
     Route: 048
     Dates: start: 20150801, end: 20170616
  13. VITAMIN D3 STREULI [Concomitant]
     Active Substance: CHOLECALCIFEROL
  14. TRITTICO [Concomitant]
     Active Substance: TRAZODONE HYDROCHLORIDE

REACTIONS (2)
  - Diverticulum intestinal haemorrhagic [Recovered/Resolved]
  - Anticoagulation drug level above therapeutic [Recovered/Resolved]

NARRATIVE: CASE EVENT DATE: 20160616
